FAERS Safety Report 8574951-0 (Version None)
Quarter: 2012Q2

REPORT INFORMATION
  Report Type: 
  Country: None (occurrence: None)
  Receive Date: 20120423
  Receipt Date: 20091130
  Transmission Date: 20120825
  Serious: Yes (Other)
  Sender: FDA-Public Use
  Company Number: PHEH2009US15156

PATIENT
  Age: 68 Year
  Sex: Female

DRUGS (4)
  1. DYAZIDE [Concomitant]
  2. ASACOL [Concomitant]
  3. NEXIUM [Concomitant]
  4. EXJADE [Suspect]
     Indication: IRON OVERLOAD
     Dosage: 1500 MG, QD, ORAL; 1250 MG DAILY, ORAL
     Route: 048
     Dates: start: 20090512, end: 20091029

REACTIONS (4)
  - BLOOD UREA INCREASED [None]
  - BLOOD CREATININE INCREASED [None]
  - GLOMERULAR FILTRATION RATE DECREASED [None]
  - RENAL FAILURE [None]
